FAERS Safety Report 10766474 (Version 1)
Quarter: 2015Q1

REPORT INFORMATION
  Report Type: Spontaneous
  Country: US (occurrence: US)
  Receive Date: 20150205
  Receipt Date: 20150205
  Transmission Date: 20150721
  Serious: No
  Sender: FDA-Public Use
  Company Number: US-GLAXOSMITHKLINE-US2014029490

PATIENT
  Sex: Female

DRUGS (7)
  1. OMEPRAZOLE. [Concomitant]
     Active Substance: OMEPRAZOLE
  2. THEOPHYLLINE [Concomitant]
     Active Substance: THEOPHYLLINE ANHYDROUS
  3. ADVAIR DISKUS [Suspect]
     Active Substance: FLUTICASONE PROPIONATE\SALMETEROL XINAFOATE
     Indication: ASTHMA
     Dosage: 1 PUFF(S), BID
     Route: 055
  4. ATIVAN [Concomitant]
     Active Substance: LORAZEPAM
  5. ASPIRIN (BABY) [Concomitant]
  6. LOVASTATIN. [Concomitant]
     Active Substance: LOVASTATIN
  7. VENTOLIN HFA [Suspect]
     Active Substance: ALBUTEROL SULFATE
     Indication: ASTHMA
     Dosage: 2 PUFF(S), BID
     Route: 055

REACTIONS (5)
  - Productive cough [Recovering/Resolving]
  - Vomiting [Recovering/Resolving]
  - Malaise [Recovered/Resolved]
  - Nasopharyngitis [Recovering/Resolving]
  - Panic disorder [Not Recovered/Not Resolved]
